FAERS Safety Report 12267356 (Version 1)
Quarter: 2016Q2

REPORT INFORMATION
  Report Type: Spontaneous
  Country: US (occurrence: None)
  Receive Date: 20160413
  Receipt Date: 20160413
  Transmission Date: 20160815
  Serious: No
  Sender: FDA-Public Use
  Company Number: None

PATIENT
  Age: 85 Year

DRUGS (25)
  1. BIOTIN [Concomitant]
     Active Substance: BIOTIN
  2. CARBIDOPA. [Concomitant]
     Active Substance: CARBIDOPA
  3. FERROUS SULF [Concomitant]
  4. GLIMEPIRIDE. [Concomitant]
     Active Substance: GLIMEPIRIDE
  5. METFORMIN [Concomitant]
     Active Substance: METFORMIN HYDROCHLORIDE
  6. ZETIA [Concomitant]
     Active Substance: EZETIMIBE
  7. AFINITOR [Suspect]
     Active Substance: EVEROLIMUS
     Indication: NEOPLASM MALIGNANT
     Route: 048
     Dates: start: 20160315
  8. EXEMESTANE. [Concomitant]
     Active Substance: EXEMESTANE
  9. MELATONIN [Concomitant]
     Active Substance: MELATONIN
  10. ASPIRIN. [Concomitant]
     Active Substance: ASPIRIN
  11. FISH OIL [Concomitant]
     Active Substance: FISH OIL
  12. OXYCODONE AND ACETAMINOPHEN [Concomitant]
     Active Substance: ACETAMINOPHEN\OXYCODONE HYDROCHLORIDE
  13. OYSTER SHELL [Concomitant]
     Active Substance: OSTREA EDULIS SHELL
  14. VALSARTAN. [Concomitant]
     Active Substance: VALSARTAN
  15. VITAMIN C [Concomitant]
     Active Substance: ASCORBIC ACID
  16. DULOXETINE. [Concomitant]
     Active Substance: DULOXETINE
  17. DOCUSATE [Concomitant]
     Active Substance: DOCUSATE
  18. PRESERVISION [Concomitant]
     Active Substance: MINERALS\VITAMINS
  19. JANUVIA [Concomitant]
     Active Substance: SITAGLIPTIN PHOSPHATE
  20. LEVOTHYROXIN [Concomitant]
     Active Substance: LEVOTHYROXINE
  21. METOPROLOL TARTRATE. [Concomitant]
     Active Substance: METOPROLOL TARTRATE
  22. GABAPENTIN. [Concomitant]
     Active Substance: GABAPENTIN
  23. PANTOPRAZOLE [Concomitant]
     Active Substance: PANTOPRAZOLE SODIUM
  24. TRAMADOL. [Concomitant]
     Active Substance: TRAMADOL
  25. XGEVA [Concomitant]
     Active Substance: DENOSUMAB

REACTIONS (1)
  - Nausea [None]

NARRATIVE: CASE EVENT DATE: 20160410
